FAERS Safety Report 18498415 (Version 5)
Quarter: 2021Q2

REPORT INFORMATION
  Report Type: Report from Study
  Country: US (occurrence: US)
  Receive Date: 20201112
  Receipt Date: 20210625
  Transmission Date: 20210717
  Serious: Yes (Hospitalization, Other)
  Sender: FDA-Public Use
  Company Number: US-TAKEDA-2020TUS046519

PATIENT
  Sex: Female
  Weight: 179 kg

DRUGS (53)
  1. HYDROCODONE [Concomitant]
     Active Substance: HYDROCODONE
  2. ION K [Concomitant]
  3. NORMAL SALINE [Concomitant]
     Active Substance: SODIUM CHLORIDE
  4. GAMMAGARD [Concomitant]
     Active Substance: HUMAN IMMUNOGLOBULIN G
  5. SYMBICORT [Concomitant]
     Active Substance: BUDESONIDE\FORMOTEROL FUMARATE DIHYDRATE
  6. HUMAN NORMAL IMMUNOGLOBULIN; LIQUID [Suspect]
     Active Substance: HUMAN IMMUNOGLOBULIN G
     Indication: IMMUNODEFICIENCY COMMON VARIABLE
     Dosage: 40 GRAM, Q2WEEKS
     Route: 042
     Dates: start: 20200117
  7. ASPIRIN [ACETYLSALICYLIC ACID] [Concomitant]
     Active Substance: ASPIRIN
  8. LIDOCAINE. [Concomitant]
     Active Substance: LIDOCAINE
  9. SODIUM CHLORIDE. [Concomitant]
     Active Substance: SODIUM CHLORIDE
  10. SINGULAIR [Concomitant]
     Active Substance: MONTELUKAST SODIUM
  11. TIZANIDINE. [Concomitant]
     Active Substance: TIZANIDINE
  12. CARVEDILOL. [Concomitant]
     Active Substance: CARVEDILOL
  13. CRANBERRY [VACCINIUM MACROCARPON] [Concomitant]
     Active Substance: CRANBERRY
  14. KETOROLAC TROMETHAMINE. [Concomitant]
     Active Substance: KETOROLAC TROMETHAMINE
  15. PANTOPRAZOLE [Concomitant]
     Active Substance: PANTOPRAZOLE
  16. METOCLOPRAMIDE. [Concomitant]
     Active Substance: METOCLOPRAMIDE
  17. POLYETHYLENE GLYCOL [Concomitant]
     Active Substance: POLYETHYLENE GLYCOLS
  18. BUSPIRONE [Concomitant]
     Active Substance: BUSPIRONE HYDROCHLORIDE
  19. EPINEPHRINE. [Concomitant]
     Active Substance: EPINEPHRINE
  20. INVOKANA [Concomitant]
     Active Substance: CANAGLIFLOZIN
  21. VESICARE [Concomitant]
     Active Substance: SOLIFENACIN SUCCINATE
  22. PAXIL [Concomitant]
     Active Substance: PAROXETINE HYDROCHLORIDE
  23. HYDROCODONE/ACETAMINOPHEN [Concomitant]
     Active Substance: ACETAMINOPHEN\HYDROCODONE
  24. SPIRIVA RESPIMAT [Concomitant]
     Active Substance: TIOTROPIUM BROMIDE
  25. OMEGA 100 [Concomitant]
  26. ACETAMINOPHEN. [Concomitant]
     Active Substance: ACETAMINOPHEN
  27. ZOCOR [Concomitant]
     Active Substance: SIMVASTATIN
  28. MYRBETRIQ [Concomitant]
     Active Substance: MIRABEGRON
  29. TROMETHAMINE. [Concomitant]
     Active Substance: TROMETHAMINE
  30. BENEFIBER [Concomitant]
     Active Substance: STARCH, WHEAT
  31. ZYRTEC [Concomitant]
     Active Substance: CETIRIZINE HYDROCHLORIDE
  32. LISINOPRIL. [Concomitant]
     Active Substance: LISINOPRIL
  33. REGLAN [Concomitant]
     Active Substance: METOCLOPRAMIDE HYDROCHLORIDE
  34. MIGRAVENT [Concomitant]
     Active Substance: DIETARY SUPPLEMENT
  35. PROBIOTICA [Concomitant]
     Active Substance: PROBIOTICS NOS
  36. GENTAMICIN. [Concomitant]
     Active Substance: GENTAMICIN
  37. CYCLOBENZAPRINE [CYCLOBENZAPRINE HYDROCHLORIDE] [Concomitant]
     Active Substance: CYCLOBENZAPRINE HYDROCHLORIDE
  38. ZOFRAN [Concomitant]
     Active Substance: ONDANSETRON HYDROCHLORIDE
  39. VITAMIN C ACID [Concomitant]
     Active Substance: ASCORBIC ACID
  40. IRON [Concomitant]
     Active Substance: IRON
  41. DIPHENHYDRAMINE. [Concomitant]
     Active Substance: DIPHENHYDRAMINE
  42. HEPARIN [Concomitant]
     Active Substance: HEPARIN SODIUM
  43. VITAMIN D3 [Concomitant]
     Active Substance: CHOLECALCIFEROL
  44. CELEBREX [Concomitant]
     Active Substance: CELECOXIB
  45. VENTOLIN [Concomitant]
     Active Substance: ALBUTEROL SULFATE
  46. COCONUT OIL [Concomitant]
     Active Substance: COCONUT OIL
  47. OXYGEN. [Concomitant]
     Active Substance: OXYGEN
  48. AIMOVIG [Concomitant]
     Active Substance: ERENUMAB-AOOE
  49. TRULICITY [Concomitant]
     Active Substance: DULAGLUTIDE
  50. MIRAPEX [Concomitant]
     Active Substance: PRAMIPEXOLE DIHYDROCHLORIDE
  51. ACTOS [Concomitant]
     Active Substance: PIOGLITAZONE HYDROCHLORIDE
  52. OXYCODONE [Concomitant]
     Active Substance: OXYCODONE
  53. FROVATRIPTAN SUCCINATE. [Concomitant]
     Active Substance: FROVATRIPTAN SUCCINATE

REACTIONS (6)
  - Diarrhoea haemorrhagic [Recovering/Resolving]
  - Nausea [Unknown]
  - Ileus [Unknown]
  - Infusion related reaction [Unknown]
  - Headache [Unknown]
  - Vomiting [Unknown]
